FAERS Safety Report 15893346 (Version 2)
Quarter: 2019Q1

REPORT INFORMATION
  Report Type: Spontaneous
  Country: US (occurrence: US)
  Receive Date: 20190130
  Receipt Date: 20190213
  Transmission Date: 20190417
  Serious: Yes (Other)
  Sender: FDA-Public Use
  Company Number: US-CONCORDIA PHARMACEUTICALS INC.-GSH201901-000171

PATIENT
  Age: 72 Year
  Sex: Female

DRUGS (9)
  1. ALLOPURINOL. [Concomitant]
     Active Substance: ALLOPURINOL
     Dosage: BY MOUTH
  2. VANCOMYCIN [Concomitant]
     Active Substance: VANCOMYCIN
     Route: 042
  3. TORSEMIDE. [Concomitant]
     Active Substance: TORSEMIDE
     Dosage: BY MOUTH
  4. METRONIDAZOLE. [Concomitant]
     Active Substance: METRONIDAZOLE
     Indication: FEBRILE NEUTROPENIA
     Route: 042
  5. POSACONAZOLE [Suspect]
     Active Substance: POSACONAZOLE
     Indication: PNEUMONIA FUNGAL
     Dosage: BY MOUTH
  6. DIGOXIN. [Suspect]
     Active Substance: DIGOXIN
     Dosage: MONDAY THROUGH FRIDAY BY MOUTH
  7. ESCITALOPRAM [Concomitant]
     Active Substance: ESCITALOPRAM OXALATE
     Dosage: BY MOUTH
  8. VANCOMYCIN [Concomitant]
     Active Substance: VANCOMYCIN
     Indication: FEBRILE NEUTROPENIA
     Dosage: 2.25 G LOADING DOSE
  9. AZTREONAM. [Concomitant]
     Active Substance: AZTREONAM
     Indication: FEBRILE NEUTROPENIA
     Route: 042

REACTIONS (3)
  - Drug interaction [Recovering/Resolving]
  - Atrial fibrillation [Recovering/Resolving]
  - Ventricular tachycardia [Recovered/Resolved]
